FAERS Safety Report 5746098-X (Version None)
Quarter: 2008Q2

REPORT INFORMATION
  Report Type: 
  Country: None (occurrence: None)
  Receive Date: 20080522
  Receipt Date: 20080326
  Transmission Date: 20081010
  Serious: No
  Sender: FDA-Public Use
  Company Number: A0717352A

PATIENT
  Age: 39 Year
  Sex: Female

DRUGS (3)
  1. BACTROBAN [Suspect]
     Indication: SKIN INFECTION
     Dosage: 1APP PER DAY
     Route: 045
     Dates: start: 20080314, end: 20080316
  2. PAXIL [Concomitant]
  3. KLONOPIN [Concomitant]

REACTIONS (2)
  - DRUG ADMINISTRATION ERROR [None]
  - SINUSITIS [None]
